FAERS Safety Report 4726582-8 (Version None)
Quarter: 2005Q3

REPORT INFORMATION
  Report Type: 
  Country: None (occurrence: None)
  Receive Date: 20050726
  Receipt Date: 20050713
  Transmission Date: 20060218
  Serious: Yes (Death, Other)
  Sender: FDA-Public Use
  Company Number: 2005104203

PATIENT
  Age: 37 Year
  Sex: Female

DRUGS (2)
  1. METHYLPREDNISOLONE [Suspect]
     Indication: SYSTEMIC LUPUS ERYTHEMATOSUS
     Dosage: 1 GRAM (DAILY FOR 3 DAYS)
  2. PREDNISONE [Suspect]
     Indication: SYSTEMIC LUPUS ERYTHEMATOSUS
     Dosage: 1.2 MG/KG (DAILY FOR 3  DAYS)

REACTIONS (6)
  - BLOOD BETA-D-GLUCAN INCREASED [None]
  - BLOOD LACTATE DEHYDROGENASE INCREASED [None]
  - CELLULITIS [None]
  - CYSTITIS KLEBSIELLA [None]
  - PNEUMOCYSTIS JIROVECI PNEUMONIA [None]
  - RESPIRATORY FAILURE [None]
